FAERS Safety Report 5818989-2 (Version None)
Quarter: 2008Q3

REPORT INFORMATION
  Report Type: 
  Country: None (occurrence: None)
  Receive Date: 20080721
  Receipt Date: 20080721
  Transmission Date: 20090109
  Serious: Yes (Other)
  Sender: FDA-Public Use
  Company Number: None

PATIENT
  Sex: Female
  Weight: 81.07 kg

DRUGS (1)
  1. REMICADE [Suspect]

REACTIONS (6)
  - BLOOD PRESSURE DECREASED [None]
  - FLUSHING [None]
  - INFUSION RELATED REACTION [None]
  - PHARYNGEAL DISORDER [None]
  - PRURITUS [None]
  - SOMNOLENCE [None]
